FAERS Safety Report 21533406 (Version 1)
Quarter: 2022Q4

REPORT INFORMATION
  Report Type: Spontaneous
  Country: US (occurrence: US)
  Receive Date: 20221101
  Receipt Date: 20221101
  Transmission Date: 20230112
  Serious: No
  Sender: FDA-Public Use
  Company Number: US-AMNEAL PHARMACEUTICALS-2022-AMRX-02042

PATIENT
  Sex: Male

DRUGS (2)
  1. CHLORPROMAZINE HYDROCHLORIDE [Suspect]
     Active Substance: CHLORPROMAZINE HYDROCHLORIDE
     Indication: Chemical poisoning
     Dosage: 25 MILLIGRAM (AT 3:30PM)
     Route: 048
     Dates: start: 202205
  2. CHLORPROMAZINE HYDROCHLORIDE [Suspect]
     Active Substance: CHLORPROMAZINE HYDROCHLORIDE
     Dosage: 50 MILLIGRAM (AT 6:30PM)
     Route: 048
     Dates: start: 202205

REACTIONS (2)
  - Drug ineffective [Unknown]
  - Product substitution issue [Unknown]
